FAERS Safety Report 7555114-4 (Version None)
Quarter: 2011Q2

REPORT INFORMATION
  Report Type: 
  Country: None (occurrence: None)
  Receive Date: 20110617
  Receipt Date: 20110603
  Transmission Date: 20111010
  Serious: Yes (Other)
  Sender: FDA-Public Use
  Company Number: DE-UCBSA-032624

PATIENT
  Age: 13 Year
  Sex: Male
  Weight: 32.5 kg

DRUGS (4)
  1. LACOSAMIDE [Suspect]
     Dosage: 1 MG/KG
  2. LACOSAMIDE [Suspect]
  3. LACOSAMIDE [Suspect]
     Dosage: DOSE: 8MG/KG - TITRATING DOSE : UP TITRATION OVER 10 WEEKS
  4. ZONISAMIDE [Concomitant]

REACTIONS (3)
  - CONVULSION [None]
  - FATIGUE [None]
  - VOMITING [None]
